FAERS Safety Report 12155418 (Version 1)
Quarter: 2016Q1

REPORT INFORMATION
  Report Type: Spontaneous
  Country: None (occurrence: US)
  Receive Date: 20160307
  Receipt Date: 20160307
  Transmission Date: 20160526
  Serious: Yes (Hospitalization, Other)
  Sender: FDA-Public Use
  Company Number: US-CHARTWELL LIFE SCIENCE LLC-2016CHA00003

PATIENT
  Sex: Female

DRUGS (1)
  1. DOXYCYCLINE HYCLATE. [Suspect]
     Active Substance: DOXYCYCLINE HYCLATE
     Dosage: UNK
     Route: 048
     Dates: start: 201601, end: 201602

REACTIONS (6)
  - Arthritis [Unknown]
  - Vertebral lesion [Unknown]
  - Back pain [Not Recovered/Not Resolved]
  - Blood pressure increased [Recovered/Resolved]
  - Heart rate increased [Unknown]
  - Musculoskeletal stiffness [Not Recovered/Not Resolved]

NARRATIVE: CASE EVENT DATE: 2016
